FAERS Safety Report 9330201 (Version 2)
Quarter: 2013Q2

REPORT INFORMATION
  Report Type: Spontaneous
  Country: US (occurrence: US)
  Receive Date: 20130604
  Receipt Date: 20130618
  Transmission Date: 20140414
  Serious: Yes (Other)
  Sender: FDA-Public Use
  Company Number: US-INCYTE CORPORATION-2013IN000887

PATIENT
  Age: 62 Year
  Sex: Female
  Weight: 79.37 kg

DRUGS (3)
  1. JAKAFI [Suspect]
     Indication: MYELOFIBROSIS
     Dosage: 20 MG, BID
     Route: 048
     Dates: start: 20130304, end: 2013
  2. JAKAFI [Suspect]
     Dosage: 20 MG, QD
     Route: 048
     Dates: start: 2013, end: 2013
  3. JAKAFI [Suspect]
     Dosage: 20 MG BID ALTERNATING WITH 20 MG QD
     Route: 048
     Dates: start: 2013

REACTIONS (3)
  - Pain in extremity [Recovered/Resolved]
  - Local swelling [Recovered/Resolved]
  - Platelet count decreased [Unknown]
